FAERS Safety Report 14276643 (Version 1)
Quarter: 2017Q4

REPORT INFORMATION
  Report Type: Spontaneous
  Country: KP (occurrence: US)
  Receive Date: 20171212
  Receipt Date: 20171212
  Transmission Date: 20180321
  Serious: Yes (Other)
  Sender: FDA-Public Use
  Company Number: KP-AMNEAL PHARMACEUTICALS-2017AMN01038

PATIENT
  Age: 28 Year
  Sex: Female

DRUGS (1)
  1. ISOTRETINOIN. [Suspect]
     Active Substance: ISOTRETINOIN
     Indication: ACNE
     Dosage: UNK
     Route: 048

REACTIONS (4)
  - Angle closure glaucoma [Unknown]
  - Choroidal effusion [Recovering/Resolving]
  - Intraocular pressure increased [Recovered/Resolved]
  - Pseudomyopia [Recovered/Resolved]
